FAERS Safety Report 6541707-X (Version None)
Quarter: 2010Q1

REPORT INFORMATION
  Report Type: 
  Country: None (occurrence: None)
  Receive Date: 20100119
  Receipt Date: 20100111
  Transmission Date: 20100710
  Serious: Yes (Hospitalization)
  Sender: FDA-Public Use
  Company Number: SE-WYE-G05305610

PATIENT
  Sex: Male

DRUGS (6)
  1. TAZOCIN [Suspect]
     Indication: INFECTION PARASITIC
     Dosage: DOSE UNKNOWN
     Dates: start: 20091001, end: 20091101
  2. SIMVASTATIN [Suspect]
     Indication: HYPERLIPIDAEMIA
     Dosage: UNKNOWN STARTDATE DOSE 20 MG WEEKLY. WITHDRAWN PERMANENTLY 08-NOV-09
     Route: 048
  3. IMDUR [Concomitant]
  4. TROMBYL [Concomitant]
  5. EUSAPRIM [Suspect]
     Indication: INFECTION PARASITIC
     Dosage: DOSE UNKNOWN
     Dates: start: 20091101
  6. COZAAR [Concomitant]

REACTIONS (3)
  - HEPATOTOXICITY [None]
  - RENAL FAILURE ACUTE [None]
  - RHABDOMYOLYSIS [None]
